FAERS Safety Report 5485123-0 (Version None)
Quarter: 2007Q4

REPORT INFORMATION
  Report Type: 
  Country: None (occurrence: None)
  Receive Date: 20071015
  Receipt Date: 20071008
  Transmission Date: 20080405
  Serious: Yes (Hospitalization)
  Sender: FDA-Public Use
  Company Number: AT-JNJFOC-20071001636

PATIENT
  Age: 47 Year
  Sex: Male

DRUGS (17)
  1. RISPERDAL [Suspect]
     Indication: DRUG USE FOR UNKNOWN INDICATION
     Route: 048
  2. TRUXAL [Suspect]
     Route: 048
  3. TRUXAL [Suspect]
     Route: 048
  4. TRUXAL [Suspect]
     Route: 048
  5. TRUXAL [Suspect]
     Route: 048
  6. TRUXAL [Suspect]
     Route: 048
  7. TRUXAL [Suspect]
     Route: 048
  8. TRUXAL [Suspect]
     Indication: DRUG USE FOR UNKNOWN INDICATION
     Route: 048
  9. GLADEM [Suspect]
     Indication: DRUG USE FOR UNKNOWN INDICATION
     Route: 048
  10. OXAZEPAM [Suspect]
     Indication: DRUG USE FOR UNKNOWN INDICATION
     Route: 048
  11. SEROQUEL [Suspect]
     Route: 048
  12. SEROQUEL [Suspect]
     Route: 048
  13. SEROQUEL [Suspect]
     Route: 048
  14. SEROQUEL [Suspect]
     Route: 048
  15. SEROQUEL [Suspect]
     Indication: DRUG USE FOR UNKNOWN INDICATION
     Route: 048
  16. TEMESTA [Concomitant]
     Route: 048
  17. TEMESTA [Concomitant]
     Indication: DRUG USE FOR UNKNOWN INDICATION
     Dosage: INTRAVENOUS
     Route: 048

REACTIONS (1)
  - URINARY RETENTION [None]
